FAERS Safety Report 22394192 (Version 3)
Quarter: 2024Q1

REPORT INFORMATION
  Report Type: Report from Study
  Country: US (occurrence: US)
  Receive Date: 20230601
  Receipt Date: 20240321
  Transmission Date: 20240410
  Serious: Yes (Other)
  Sender: FDA-Public Use
  Company Number: US-Merck LLC-9405447

PATIENT
  Age: 75 Year
  Sex: Female

DRUGS (2)
  1. REBIF [Suspect]
     Active Substance: INTERFERON BETA-1A
     Indication: Multiple sclerosis
     Dosage: PREFILLED SYRINGE
     Route: 058
     Dates: start: 20061129
  2. REBIF [Suspect]
     Active Substance: INTERFERON BETA-1A
     Dosage: PREFILLED SYRINGE
     Route: 058
     Dates: start: 201901

REACTIONS (3)
  - Staphylococcal infection [Unknown]
  - Injection site abscess [Unknown]
  - Fall [Unknown]

NARRATIVE: CASE EVENT DATE: 20230401
